FAERS Safety Report 8065381-9 (Version None)
Quarter: 2012Q1

REPORT INFORMATION
  Report Type: 
  Country: None (occurrence: None)
  Receive Date: 20120117
  Receipt Date: 20120110
  Transmission Date: 20120608
  Serious: Yes (Hospitalization)
  Sender: FDA-Public Use
  Company Number: 2011SP059569

PATIENT
  Age: 70 Year
  Sex: Female

DRUGS (13)
  1. DOMPERIDONE [Concomitant]
  2. ROSUVASTATIN CALCIUM [Concomitant]
  3. TOLPERISONE HYDROCHLORIDE [Concomitant]
  4. ENZYME [Concomitant]
  5. LANSOPRAZOLE [Concomitant]
  6. MOSAPRIDE CITRATE [Concomitant]
  7. OXAZOLAM [Concomitant]
  8. ISOPRENALINE HDYROCHLORIDE [Concomitant]
  9. MIRTAZAPINE [Suspect]
     Indication: DRUG DEPENDENCE
     Dosage: 15 MG;QD;PO ; 30 MG;QD;PO ; 15 MG;QD;PO ; PO
     Route: 048
     Dates: start: 20110922, end: 20111002
  10. MIRTAZAPINE [Suspect]
     Indication: DRUG DEPENDENCE
     Dosage: 15 MG;QD;PO ; 30 MG;QD;PO ; 15 MG;QD;PO ; PO
     Route: 048
     Dates: end: 20110921
  11. MIRTAZAPINE [Suspect]
     Indication: DRUG DEPENDENCE
     Dosage: 15 MG;QD;PO ; 30 MG;QD;PO ; 15 MG;QD;PO ; PO
     Route: 048
     Dates: start: 20100804
  12. BROTIZOLAM [Concomitant]
  13. AMICALIQ (AMICALIQ /01208801/) [Suspect]
     Indication: PRODUCT USED FOR UNKNOWN INDICATION
     Dosage: IV
     Route: 042
     Dates: start: 20110922

REACTIONS (10)
  - ECZEMA [None]
  - HEPATIC FUNCTION ABNORMAL [None]
  - NAUSEA [None]
  - TOXIC SKIN ERUPTION [None]
  - LIVER DISORDER [None]
  - HEPATIC ENZYME INCREASED [None]
  - ASTHENIA [None]
  - BURNING SENSATION [None]
  - HYPERSENSITIVITY [None]
  - INSOMNIA [None]
